FAERS Safety Report 4903461-4 (Version None)
Quarter: 2006Q1

REPORT INFORMATION
  Report Type: 
  Country: None (occurrence: None)
  Receive Date: 20060203
  Receipt Date: 20060126
  Transmission Date: 20060701
  Serious: Yes (Hospitalization)
  Sender: FDA-Public Use
  Company Number: DE-2005-026359

PATIENT
  Age: 32 Year
  Sex: Female
  Weight: 80.1 kg

DRUGS (2)
  1. MIRENA [Suspect]
     Indication: CONTRACEPTION
     Dosage: 20 UG/DAY, CONT, INTRA-UTERINE
     Route: 015
     Dates: start: 20030129
  2. THYRONAJOD (POTASSIUM IODIDE, LEVOTHYROXINE SODIUM) [Concomitant]

REACTIONS (1)
  - THROMBOSIS [None]
